FAERS Safety Report 6758067-1 (Version None)
Quarter: 2010Q2

REPORT INFORMATION
  Report Type: 
  Country: None (occurrence: None)
  Receive Date: 20100607
  Receipt Date: 20100210
  Transmission Date: 20101027
  Serious: Yes (Disabling)
  Sender: FDA-Public Use
  Company Number: PHHY2010FR09155

PATIENT
  Age: 2 Year

DRUGS (1)
  1. NEORAL [Suspect]
     Indication: BONE MARROW TRANSPLANT
     Dosage: 14 MG IN THE MORNING, 14 MG IN THE EVENING

REACTIONS (1)
  - HAND DEFORMITY [None]
